FAERS Safety Report 5146304-9 (Version None)
Quarter: 2006Q4

REPORT INFORMATION
  Report Type: 
  Country: None (occurrence: None)
  Receive Date: 20061102
  Receipt Date: 20061020
  Transmission Date: 20070319
  Serious: Yes (Other)
  Sender: FDA-Public Use
  Company Number: 200610AGG00503

PATIENT

DRUGS (1)
  1. AGGRASTAT [Suspect]
     Dosage: IV
     Route: 042

REACTIONS (1)
  - PRESCRIBED OVERDOSE [None]
